FAERS Safety Report 24969829 (Version 1)
Quarter: 2025Q1

REPORT INFORMATION
  Report Type: Spontaneous
  Country: US (occurrence: US)
  Receive Date: 20250214
  Receipt Date: 20250214
  Transmission Date: 20250409
  Serious: Yes (Hospitalization)
  Sender: MYLAN
  Company Number: US-MYLANLABS-2025M1011842

PATIENT
  Age: 50 Year
  Sex: Female

DRUGS (8)
  1. EVEROLIMUS [Suspect]
     Active Substance: EVEROLIMUS
     Indication: Pancreatic neuroendocrine tumour metastatic
     Route: 065
  2. OCTREOTIDE [Suspect]
     Active Substance: OCTREOTIDE
     Indication: Hyperinsulinaemic hypoglycaemia
     Dosage: 400 MICROGRAM, Q8H
     Route: 065
  3. OCTREOTIDE [Suspect]
     Active Substance: OCTREOTIDE
     Indication: Pancreatic neuroendocrine tumour metastatic
  4. DEXAMETHASONE [Suspect]
     Active Substance: DEXAMETHASONE
     Indication: Hyperinsulinaemic hypoglycaemia
     Dosage: 4 MILLIGRAM, QD (HIGH-DOSE DEXAMETHASONE)
     Route: 065
  5. DEXAMETHASONE [Suspect]
     Active Substance: DEXAMETHASONE
     Indication: Pancreatic neuroendocrine tumour metastatic
     Route: 065
  6. LANREOTIDE [Suspect]
     Active Substance: LANREOTIDE
     Indication: Pancreatic neuroendocrine tumour metastatic
     Route: 065
  7. DEXTROSE [Suspect]
     Active Substance: DEXTROSE MONOHYDRATE
     Indication: Hyperinsulinaemic hypoglycaemia
     Route: 048
  8. DIAZOXIDE [Suspect]
     Active Substance: DIAZOXIDE
     Indication: Hyperinsulinaemic hypoglycaemia
     Route: 065

REACTIONS (6)
  - Weight increased [Unknown]
  - Cushingoid [Unknown]
  - Hypervolaemia [Unknown]
  - Disease progression [Unknown]
  - Drug ineffective [Unknown]
  - Off label use [Unknown]
